FAERS Safety Report 17249617 (Version 2)
Quarter: 2020Q1

REPORT INFORMATION
  Report Type: Spontaneous
  Country: PT (occurrence: PT)
  Receive Date: 20200108
  Receipt Date: 20200110
  Transmission Date: 20200409
  Serious: Yes (Life-Threatening, Hospitalization, Other)
  Sender: FDA-Public Use
  Company Number: PT-B.I. PHARMACEUTICALS,INC./RIDGEFIELD-2020-BI-000958

PATIENT
  Age: 74 Year
  Sex: Male

DRUGS (1)
  1. PRADAXA [Suspect]
     Active Substance: DABIGATRAN ETEXILATE MESYLATE
     Indication: ATRIAL FIBRILLATION
     Route: 065

REACTIONS (10)
  - Gastric haemorrhage [Recovering/Resolving]
  - Shock [Recovering/Resolving]
  - Pallor [Recovering/Resolving]
  - Haematochezia [Recovering/Resolving]
  - Small intestinal haemorrhage [Recovering/Resolving]
  - Diverticulum intestinal haemorrhagic [Recovered/Resolved]
  - Dieulafoy^s vascular malformation [Recovered/Resolved]
  - Tachycardia [Recovering/Resolving]
  - Hypotension [Recovering/Resolving]
  - Haematemesis [Recovering/Resolving]
